FAERS Safety Report 7650620-6 (Version None)
Quarter: 2011Q3

REPORT INFORMATION
  Report Type: 
  Country: None (occurrence: None)
  Receive Date: 20110802
  Receipt Date: 20110725
  Transmission Date: 20111222
  Serious: Yes (Hospitalization)
  Sender: FDA-Public Use
  Company Number: US-SANOFI-AVENTIS-2011SA048239

PATIENT
  Age: 76 Year
  Sex: Male

DRUGS (10)
  1. COUMADIN [Suspect]
     Route: 065
  2. PLAVIX [Suspect]
     Route: 065
  3. DIURETICS [Concomitant]
  4. ACE INHIBITOR NOS [Concomitant]
  5. NOVOLOG [Concomitant]
     Dosage: DOSE:36 UNIT(S)
  6. BETA BLOCKING AGENTS [Concomitant]
  7. ORGANIC NITRATES [Concomitant]
  8. ASPIRIN [Suspect]
     Dosage: ={100MG
     Route: 065
  9. LANTUS [Concomitant]
     Dosage: DOSE:50 UNIT(S)
  10. HMG COA REDUCTASE INHIBITORS [Concomitant]

REACTIONS (3)
  - HAEMATURIA [None]
  - TRANSITIONAL CELL CARCINOMA [None]
  - INTERNATIONAL NORMALISED RATIO INCREASED [None]
